FAERS Safety Report 21904969 (Version 2)
Quarter: 2023Q1

REPORT INFORMATION
  Report Type: Report from Study
  Country: FR (occurrence: None)
  Receive Date: 20230124
  Receipt Date: 20230131
  Transmission Date: 20230417
  Serious: Yes (Other)
  Sender: FDA-Public Use
  Company Number: 2023A006200

PATIENT
  Age: 1009 Month
  Sex: Male
  Weight: 78 kg

DRUGS (2)
  1. IMFINZI [Suspect]
     Active Substance: DURVALUMAB
     Indication: Biliary neoplasm
     Route: 041
     Dates: start: 20221222, end: 20221222
  2. CISPLATIN/GEMCITABINE [Concomitant]

REACTIONS (8)
  - General physical health deterioration [Unknown]
  - Asthenia [Unknown]
  - Respiratory distress [Unknown]
  - Decreased appetite [Unknown]
  - Weight decreased [Unknown]
  - Faeces discoloured [Unknown]
  - Anaemia [Unknown]
  - Thrombocytopenia [Unknown]

NARRATIVE: CASE EVENT DATE: 20221230
